FAERS Safety Report 11800556 (Version 2)
Quarter: 2015Q4

REPORT INFORMATION
  Report Type: Spontaneous
  Country: FR (occurrence: FR)
  Receive Date: 20151204
  Receipt Date: 20151210
  Transmission Date: 20160305
  Serious: Yes (Other)
  Sender: FDA-Public Use
  Company Number: FR-ROCHE-1671350

PATIENT
  Age: 88 Year
  Sex: Female

DRUGS (1)
  1. LUCENTIS [Suspect]
     Active Substance: RANIBIZUMAB
     Indication: AGE-RELATED MACULAR DEGENERATION
     Dosage: DATE OF RECENT LUCENTIS INJECTION 09/SEP/2013, TOTAL 5 INJECTIONS IN RIGHT EYE
     Route: 050

REACTIONS (4)
  - Retinal tear [Unknown]
  - Retinal injury [Unknown]
  - Visual acuity reduced [Not Recovered/Not Resolved]
  - Macular hole [Recovered/Resolved with Sequelae]

NARRATIVE: CASE EVENT DATE: 20130909
